FAERS Safety Report 7250739-8 (Version None)
Quarter: 2011Q1

REPORT INFORMATION
  Report Type: 
  Country: None (occurrence: None)
  Receive Date: 20110119
  Receipt Date: 20110111
  Transmission Date: 20110831
  Serious: Yes (Other)
  Sender: FDA-Public Use
  Company Number: 2010PL000176

PATIENT
  Age: 32 Year
  Sex: Female

DRUGS (5)
  1. LOESTRIN 1.5/30 [Concomitant]
  2. NASACORT AQ [Concomitant]
  3. AZELASTINE HCL [Concomitant]
  4. LOTRONEX [Suspect]
     Indication: IRRITABLE BOWEL SYNDROME
     Dosage: 1 MG; QD; PO
     Route: 048
     Dates: start: 20080101, end: 20101126
  5. LOTRONEX [Suspect]
     Indication: DIARRHOEA
     Dosage: 1 MG; QD; PO
     Route: 048
     Dates: start: 20080101, end: 20101126

REACTIONS (10)
  - ACNE [None]
  - COLITIS ISCHAEMIC [None]
  - ABDOMINAL PAIN [None]
  - PROCEDURAL PAIN [None]
  - CONSTIPATION [None]
  - HAEMATOCHEZIA [None]
  - ABDOMINAL PAIN LOWER [None]
  - HAEMORRHOIDAL HAEMORRHAGE [None]
  - REFUSAL OF TREATMENT BY PATIENT [None]
  - DISCOMFORT [None]
